FAERS Safety Report 9642023 (Version 2)
Quarter: 2013Q4

REPORT INFORMATION
  Report Type: Report from Study
  Country: NL (occurrence: NL)
  Receive Date: 20131023
  Receipt Date: 20131125
  Transmission Date: 20140711
  Serious: Yes (Death)
  Sender: FDA-Public Use
  Company Number: NL-BAXTER-2013BAX041046

PATIENT
  Age: 48 Year
  Sex: Female

DRUGS (2)
  1. KIOVIG 100 MG/ML OPLOSSING VOOR INFUSIE (20 G/200 ML) [Suspect]
     Indication: CHRONIC INFLAMMATORY DEMYELINATING POLYRADICULONEUROPATHY
     Route: 065
     Dates: start: 20130212
  2. KIOVIG 100 MG/ML OPLOSSING VOOR INFUSIE (20 G/200 ML) [Suspect]
     Indication: OFF LABEL USE

REACTIONS (1)
  - Death [Fatal]
